FAERS Safety Report 6094660-X (Version None)
Quarter: 2009Q1

REPORT INFORMATION
  Report Type: 
  Country: None (occurrence: None)
  Receive Date: 20090226
  Receipt Date: 20090219
  Transmission Date: 20090719
  Serious: Yes (Hospitalization, Other)
  Sender: FDA-Public Use
  Company Number: US-ABBOTT-09P-163-0558238-00

PATIENT
  Sex: Female
  Weight: 70.37 kg

DRUGS (9)
  1. HUMIRA [Suspect]
     Indication: CROHN'S DISEASE
     Dosage: LOADING DOSE 160 MG
     Route: 058
     Dates: start: 20090126
  2. HUMIRA [Suspect]
     Dosage: 80 MG SECOND DOSE
     Route: 058
  3. HUMIRA [Suspect]
     Route: 058
  4. PREDNISONE [Concomitant]
     Indication: CROHN'S DISEASE
     Dosage: 10MG IN AM AND 10MG IN PM
     Route: 048
  5. PREVACID [Concomitant]
     Indication: DRUG USE FOR UNKNOWN INDICATION
     Route: 048
  6. SYNTHROID [Concomitant]
     Indication: THYROID DISORDER
     Route: 048
  7. SINGULAIR [Concomitant]
     Indication: DRUG USE FOR UNKNOWN INDICATION
     Route: 048
  8. LORAZEPAM [Concomitant]
     Indication: SLEEP DISORDER
     Dosage: NOT REPORTED
  9. ADVIL [Concomitant]
     Indication: PAIN

REACTIONS (5)
  - ASTHMA [None]
  - CHOLELITHIASIS [None]
  - FATIGUE [None]
  - HERNIA [None]
  - INTESTINAL STENOSIS [None]
